FAERS Safety Report 20527670 (Version 1)
Quarter: 2022Q1

REPORT INFORMATION
  Report Type: Spontaneous
  Country: US (occurrence: US)
  Receive Date: 20220228
  Receipt Date: 20220228
  Transmission Date: 20220424
  Serious: No
  Sender: FDA-Public Use
  Company Number: US-PERRIGO-21US011614

PATIENT
  Age: 70 Year
  Sex: Female
  Weight: 70.295 kg

DRUGS (3)
  1. ESTRADIOL [Suspect]
     Active Substance: ESTRADIOL
     Indication: Atrophy
     Dosage: UNKNOWN, TWICE WEEKLY
     Route: 067
     Dates: start: 20210315, end: 2021
  2. ESTRADIOL [Suspect]
     Active Substance: ESTRADIOL
     Indication: Vulvovaginal dryness
  3. ESTRADIOL [Suspect]
     Active Substance: ESTRADIOL
     Indication: Postmenopause

REACTIONS (3)
  - Swelling face [Unknown]
  - Breast swelling [Unknown]
  - Abdominal distension [Unknown]

NARRATIVE: CASE EVENT DATE: 20210301
